FAERS Safety Report 16174028 (Version 1)
Quarter: 2019Q2

REPORT INFORMATION
  Report Type: Spontaneous
  Country: US (occurrence: US)
  Receive Date: 20190306
  Receipt Date: 20190306
  Transmission Date: 20190711
  Serious: Yes (Other)
  Sender: FDA-Public Use
  Company Number: None

PATIENT
  Age: 2 Year
  Sex: Male

DRUGS (4)
  1. SOMATULINE DEPOT [Suspect]
     Active Substance: LANREOTIDE ACETATE
     Indication: HYPOGLYCAEMIA
     Route: 058
     Dates: start: 20190306
  2. LACTULOSE. [Concomitant]
     Active Substance: LACTULOSE
  3. ACARBOSE. [Concomitant]
     Active Substance: ACARBOSE
  4. LIDO/PRILOCN CRE [Concomitant]

REACTIONS (1)
  - Off label use [None]

NARRATIVE: CASE EVENT DATE: 20190306
